FAERS Safety Report 9132218 (Version 2)
Quarter: 2013Q3

REPORT INFORMATION
  Report Type: Report from Study
  Country: DE (occurrence: DE)
  Receive Date: 20130208
  Receipt Date: 20130722
  Transmission Date: 20140515
  Serious: Yes (Death)
  Sender: FDA-Public Use
  Company Number: PHHO2013DE002186

PATIENT
  Sex: 0

DRUGS (4)
  1. DOCETAXEL [Suspect]
     Indication: BREAST CANCER
     Dosage: 132 MG, UNK
     Route: 042
     Dates: start: 20060911, end: 20060911
  2. GEMCITABINE [Suspect]
     Indication: BREAST CANCER
     Dosage: 1760 MG, UNK
     Route: 042
     Dates: start: 20060919, end: 20060919
  3. ZOLEDRONATE [Suspect]
     Indication: BREAST CANCER
     Dosage: 4 MG, UNK
     Route: 042
     Dates: start: 20080901, end: 20080901
  4. ARIMIDEX [Concomitant]
     Indication: BREAST CANCER
     Dosage: 1 MG, UNK
     Route: 048
     Dates: start: 20080902

REACTIONS (1)
  - Acute myeloid leukaemia [Fatal]
